FAERS Safety Report 9051477 (Version 1)
Quarter: 2013Q1

REPORT INFORMATION
  Report Type: Spontaneous
  Country: US (occurrence: US)
  Receive Date: 20130206
  Receipt Date: 20130206
  Transmission Date: 20140127
  Serious: No
  Sender: FDA-Public Use
  Company Number: US-ALLERGAN-1214028US

PATIENT
  Sex: Male

DRUGS (5)
  1. RESTASIS [Suspect]
     Indication: POSTOPERATIVE CARE
     Dosage: ONE DROP TO THE LEFT EYE, TWICE DAILY
     Route: 047
     Dates: start: 201209
  2. FLUOROMETHOLONE [Suspect]
     Indication: EYE INFECTION
     Dosage: ONE DROP LEFT EYE, DAILY
     Route: 047
     Dates: start: 201208
  3. NATURAL TEARS [Concomitant]
     Indication: EYE LUBRICATION THERAPY
     Dosage: ONE DROP, RIGHT EYE, AS NEEDED
     Route: 047
  4. BLOOD PRESSURE MEDICATION [Concomitant]
     Indication: HYPERTENSION
     Dosage: ONE BY MOUTH, DAILY
     Route: 048
  5. DIURETIC [Concomitant]
     Indication: PRODUCT USED FOR UNKNOWN INDICATION
     Dosage: 1 DF, QD
     Route: 048

REACTIONS (3)
  - Off label use [Unknown]
  - Eye discharge [Not Recovered/Not Resolved]
  - Eye pruritus [Not Recovered/Not Resolved]
